FAERS Safety Report 6686682-2 (Version None)
Quarter: 2010Q2

REPORT INFORMATION
  Report Type: 
  Country: None (occurrence: None)
  Receive Date: 20100415
  Receipt Date: 20100331
  Transmission Date: 20101027
  Serious: Yes (Death, Hospitalization)
  Sender: FDA-Public Use
  Company Number: 2010AC000090

PATIENT
  Age: 75 Year
  Sex: Female

DRUGS (22)
  1. DIGOXIN [Suspect]
     Dosage: 0.125 MG;QD;PO
     Dates: start: 20061012, end: 20070101
  2. GLIPIZIDE [Concomitant]
  3. COUMADIN [Concomitant]
  4. VYTORIN [Concomitant]
  5. LASIX [Concomitant]
  6. NORVASC [Concomitant]
  7. COZOLE [Concomitant]
  8. TRICOR [Concomitant]
  9. METOLAZONE [Concomitant]
  10. COREG [Concomitant]
  11. BALSALAZIDE [Concomitant]
  12. ACTONEL [Concomitant]
  13. VITAMIN K TAB [Concomitant]
  14. DARVOCET [Concomitant]
  15. ALTACE [Concomitant]
  16. FERROUS SULFATE TAB [Concomitant]
  17. LOPERAMIDE [Concomitant]
  18. BUMETANIDE [Concomitant]
  19. ACETAMINOPHEN [Concomitant]
  20. CODEINE SULFATE [Concomitant]
  21. EPOGEN [Concomitant]
  22. ATROPINE [Concomitant]

REACTIONS (59)
  - ABDOMINAL DISTENSION [None]
  - ABDOMINAL HERNIA [None]
  - ABDOMINAL PAIN [None]
  - ACUTE PRERENAL FAILURE [None]
  - AORTIC VALVE SCLEROSIS [None]
  - ARTHRALGIA [None]
  - ASTHENIA [None]
  - BETA HAEMOLYTIC STREPTOCOCCAL INFECTION [None]
  - BLOOD CALCIUM INCREASED [None]
  - BLOOD CHLORIDE DECREASED [None]
  - BLOOD POTASSIUM DECREASED [None]
  - BRADYCARDIA [None]
  - CARDIAC FAILURE CONGESTIVE [None]
  - CARDIOMEGALY [None]
  - CAROTID BRUIT [None]
  - CHEST DISCOMFORT [None]
  - COAGULOPATHY [None]
  - COUGH [None]
  - CULTURE URINE POSITIVE [None]
  - DEAFNESS [None]
  - DECREASED APPETITE [None]
  - DEEP VEIN THROMBOSIS [None]
  - DEPRESSION [None]
  - DIARRHOEA [None]
  - DILATATION ATRIAL [None]
  - DIZZINESS [None]
  - DYSPNOEA [None]
  - EJECTION FRACTION DECREASED [None]
  - FATIGUE [None]
  - FLUID OVERLOAD [None]
  - HEADACHE [None]
  - HYPERGLYCAEMIA [None]
  - HYPOKALAEMIA [None]
  - ILEUS [None]
  - INJURY [None]
  - INSOMNIA [None]
  - KNEE ARTHROPLASTY [None]
  - MALNUTRITION [None]
  - MITRAL VALVE INCOMPETENCE [None]
  - MULTIPLE INJURIES [None]
  - MUSCLE SPASMS [None]
  - MYOCARDIAL INFARCTION [None]
  - NOCTURIA [None]
  - OEDEMA [None]
  - PAIN [None]
  - PLEURAL EFFUSION [None]
  - POLLAKIURIA [None]
  - PROTEINURIA [None]
  - RASH [None]
  - RENAL FAILURE ACUTE [None]
  - RENAL FAILURE CHRONIC [None]
  - TENDERNESS [None]
  - THERAPEUTIC AGENT TOXICITY [None]
  - THYROID NEOPLASM [None]
  - TRICUSPID VALVE INCOMPETENCE [None]
  - VENOUS INSUFFICIENCY [None]
  - VENTRICULAR HYPOKINESIA [None]
  - VOMITING [None]
  - WEIGHT DECREASED [None]
